FAERS Safety Report 4281846-X (Version None)
Quarter: 2004Q1

REPORT INFORMATION
  Report Type: 
  Country: None (occurrence: None)
  Receive Date: 20040129
  Receipt Date: 20040121
  Transmission Date: 20041129
  Serious: Yes (Hospitalization)
  Sender: FDA-Public Use
  Company Number: WAES 0401DNK00026

PATIENT
  Age: 84 Year
  Sex: Female

DRUGS (2)
  1. ASPIRIN [Suspect]
     Route: 048
     Dates: start: 20000101, end: 20040112
  2. VIOXX [Suspect]
     Indication: GOUT
     Route: 048
     Dates: start: 20031115, end: 20040112

REACTIONS (1)
  - ULCER HAEMORRHAGE [None]
